FAERS Safety Report 7342054-9 (Version None)
Quarter: 2011Q1

REPORT INFORMATION
  Report Type: 
  Country: None (occurrence: None)
  Receive Date: 20110309
  Receipt Date: 20110224
  Transmission Date: 20110831
  Serious: Yes (Hospitalization)
  Sender: FDA-Public Use
  Company Number: JP-GENENTECH-295848

PATIENT
  Sex: Male

DRUGS (7)
  1. BETAMETHASONE [Concomitant]
     Indication: PRODUCT USED FOR UNKNOWN INDICATION
     Dosage: UNK
     Dates: start: 20091027, end: 20091027
  2. LEVOFLOXACIN [Concomitant]
     Indication: PRODUCT USED FOR UNKNOWN INDICATION
  3. FLUORESCEIN SODIUM [Suspect]
     Indication: ANGIOGRAM RETINA
     Dosage: UNK
     Dates: start: 20091021
  4. DYE NOS [Suspect]
     Indication: ANGIOGRAM RETINA
     Dosage: UNK
     Dates: start: 20091021
  5. RANIBIZUMAB [Suspect]
     Indication: MACULAR DEGENERATION
     Dosage: 0.05 ML, UNK
     Route: 031
     Dates: start: 20090723
  6. NITROGLYCERIN [Concomitant]
     Indication: PRODUCT USED FOR UNKNOWN INDICATION
     Dosage: UNK
     Dates: start: 20091026, end: 20091026
  7. TRAVOPROST [Concomitant]
     Indication: PRODUCT USED FOR UNKNOWN INDICATION
     Dosage: UNK
     Dates: start: 20100629

REACTIONS (2)
  - GLAUCOMA [None]
  - ANAPHYLACTOID REACTION [None]
